FAERS Safety Report 4296682-8 (Version None)
Quarter: 2004Q1

REPORT INFORMATION
  Report Type: 
  Country: None (occurrence: None)
  Receive Date: 20040217
  Receipt Date: 20040206
  Transmission Date: 20041129
  Serious: Yes (Death, Hospitalization)
  Sender: FDA-Public Use
  Company Number: WAES 0402GBR00097

PATIENT
  Age: 73 Year
  Sex: Female
  Weight: 96 kg

DRUGS (5)
  1. ACETAMINOPHEN AND DIHYDROCODEINE BITARTRATE [Concomitant]
     Indication: ARTHRITIS
     Route: 048
  2. LANSOPRAZOLE [Concomitant]
     Indication: GASTRITIS
     Route: 048
     Dates: start: 20030501
  3. LANSOPRAZOLE [Concomitant]
     Indication: HELICOBACTER INFECTION
     Route: 048
     Dates: start: 20030501
  4. ALDOMET [Suspect]
     Indication: HYPERTENSION
     Route: 048
     Dates: start: 19750101, end: 20030501
  5. MINERALS (UNSPECIFIED) AND VITAMINS (UNSPECIFIED) [Concomitant]
     Route: 048

REACTIONS (21)
  - ADRENOCORTICAL INSUFFICIENCY CHRONIC [None]
  - ANOREXIA [None]
  - CARDIAC ARREST [None]
  - CELLULITIS [None]
  - CONFUSIONAL STATE [None]
  - DEHYDRATION [None]
  - DISORIENTATION [None]
  - GASTROENTERITIS HELICOBACTER [None]
  - HEPATIC NECROSIS [None]
  - HEPATIC STEATOSIS [None]
  - HYPOTENSION [None]
  - JOINT SWELLING [None]
  - MALAISE [None]
  - NAUSEA [None]
  - PULMONARY EMBOLISM [None]
  - SEPSIS [None]
  - SKIN ULCER [None]
  - SYNCOPE [None]
  - TREMOR [None]
  - VENTRICULAR HYPERTROPHY [None]
  - VOMITING [None]
